FAERS Safety Report 7062990-0 (Version None)
Quarter: 2010Q4

REPORT INFORMATION
  Report Type: 
  Country: None (occurrence: None)
  Receive Date: 20101026
  Receipt Date: 20100406
  Transmission Date: 20110411
  Serious: No
  Sender: FDA-Public Use
  Company Number: US-PFIZER INC-2010022312

PATIENT
  Sex: Male
  Weight: 82.54 kg

DRUGS (4)
  1. LIPITOR [Suspect]
     Indication: BLOOD CHOLESTEROL INCREASED
     Dosage: 10 MG, DAILY
     Route: 048
     Dates: start: 19930101, end: 20090101
  2. FOLIC ACID [Concomitant]
     Dosage: UNK
  3. PREVACID [Concomitant]
     Dosage: UNK
  4. RISPERIDONE [Concomitant]
     Dosage: UNK

REACTIONS (2)
  - ABNORMAL DREAMS [None]
  - NIGHTMARE [None]
